FAERS Safety Report 11419076 (Version 6)
Quarter: 2015Q4

REPORT INFORMATION
  Report Type: Report from Study
  Country: US (occurrence: US)
  Receive Date: 20150826
  Receipt Date: 20151209
  Transmission Date: 20160304
  Serious: Yes (Other)
  Sender: FDA-Public Use
  Company Number: US-AMGEN-USASP2015084230

PATIENT
  Age: 63 Year
  Sex: Female

DRUGS (2)
  1. ENBREL [Suspect]
     Active Substance: ETANERCEPT
     Indication: RHEUMATOID ARTHRITIS
     Dosage: 50 MG, QWK
     Route: 065
     Dates: start: 20150810
  2. ENBREL [Suspect]
     Active Substance: ETANERCEPT
     Dosage: UNK
     Route: 065

REACTIONS (15)
  - Lip swelling [Unknown]
  - Erythema [Unknown]
  - Wrong technique in product usage process [Unknown]
  - White blood cell count decreased [Not Recovered/Not Resolved]
  - Swelling [Unknown]
  - Cough [Unknown]
  - Nasopharyngitis [Unknown]
  - Rectal haemorrhage [Unknown]
  - Injection site erythema [Unknown]
  - Oropharyngeal pain [Unknown]
  - Chills [Unknown]
  - Injection site swelling [Unknown]
  - Fatigue [Unknown]
  - Paraesthesia oral [Unknown]
  - Underdose [Unknown]

NARRATIVE: CASE EVENT DATE: 2015
